FAERS Safety Report 19967048 (Version 2)
Quarter: 2021Q4

REPORT INFORMATION
  Report Type: Spontaneous
  Country: ES (occurrence: ES)
  Receive Date: 20211019
  Receipt Date: 20211103
  Transmission Date: 20220303
  Serious: Yes (Other)
  Sender: FDA-Public Use
  Company Number: ES-SUN PHARMACEUTICAL INDUSTRIES LTD-2021RR-314438

PATIENT
  Age: 18 Year
  Sex: Male

DRUGS (4)
  1. TARCEVA [Suspect]
     Active Substance: ERLOTINIB HYDROCHLORIDE
     Indication: Leiomyoma
     Dosage: 150 MILLIGRAM, QD
     Route: 065
  2. TARCEVA [Suspect]
     Active Substance: ERLOTINIB HYDROCHLORIDE
     Indication: Renal cell carcinoma
  3. AVASTIN [Suspect]
     Active Substance: BEVACIZUMAB
     Indication: Leiomyoma
     Dosage: 10 MILLIGRAM/SQ. METER, BIWEEKLY
     Route: 065
  4. AVASTIN [Suspect]
     Active Substance: BEVACIZUMAB
     Indication: Renal cell carcinoma

REACTIONS (3)
  - Hypothyroidism [Unknown]
  - Dermatitis acneiform [Unknown]
  - Disease progression [Unknown]
